FAERS Safety Report 7715022-2 (Version None)
Quarter: 2011Q3

REPORT INFORMATION
  Report Type: 
  Country: None (occurrence: None)
  Receive Date: 20110829
  Receipt Date: 20110701
  Transmission Date: 20111222
  Serious: No
  Sender: FDA-Public Use
  Company Number: US-ASTRAZENECA-2011SE39521

PATIENT
  Age: 46 Year
  Sex: Female

DRUGS (4)
  1. VITAMIN B6 [Concomitant]
  2. KAPIDEX [Concomitant]
  3. VITAMIN B-12 [Concomitant]
  4. VIMOVO [Suspect]
     Dosage: TOTAL DAILY DOSE 500 MG / 20 MG
     Route: 048
     Dates: start: 20110501, end: 20110601

REACTIONS (2)
  - PAIN IN EXTREMITY [None]
  - OEDEMA PERIPHERAL [None]
